FAERS Safety Report 26151475 (Version 2)
Quarter: 2025Q4

REPORT INFORMATION
  Report Type: Spontaneous
  Country: GB (occurrence: GB)
  Receive Date: 20251212
  Receipt Date: 20251222
  Transmission Date: 20260117
  Serious: Yes (Life-Threatening, Other)
  Sender: PFIZER
  Company Number: GB-PFIZER INC-PV202500144395

PATIENT
  Age: 65 Year
  Sex: Female

DRUGS (2)
  1. METHYLPREDNISOLONE SODIUM SUCCINATE [Suspect]
     Active Substance: METHYLPREDNISOLONE SODIUM SUCCINATE
     Indication: Dermatomyositis
     Dosage: UNK, HIGH-DOSE
     Route: 042
  2. PREDNISOLONE [Suspect]
     Active Substance: PREDNISOLONE
     Indication: Dermatomyositis
     Dosage: HIGH-DOSE
     Route: 048

REACTIONS (5)
  - Gastrointestinal haemorrhage [Unknown]
  - Delirium [Unknown]
  - Diabetic ketoacidosis [Unknown]
  - Pathological fracture [Unknown]
  - Drug ineffective [Unknown]
